FAERS Safety Report 5041989-X (Version None)
Quarter: 2006Q2

REPORT INFORMATION
  Report Type: 
  Country: None (occurrence: None)
  Receive Date: 20060627
  Receipt Date: 20060616
  Transmission Date: 20061013
  Serious: Yes (Other)
  Sender: FDA-Public Use
  Company Number: 2006076923

PATIENT
  Age: 56 Year
  Sex: Female

DRUGS (7)
  1. DEPO-MEDROL [Suspect]
     Indication: NEUROMA
     Dosage: (80 MG)
     Dates: start: 20060227
  2. DEPO-MEDROL [Suspect]
     Indication: PIRIFORMIS SYNDROME
     Dosage: (80 MG)
     Dates: start: 20060227
  3. PREVACID [Concomitant]
  4. WARFARIN SODIUM [Concomitant]
  5. MULTIVITAMIN [Concomitant]
  6. CALCIUM WITH VITAMIN D (CALCIUM PHOSPHATE, CALCIUM SODIUM LACTATE, ERG [Concomitant]
  7. PERCOCET [Concomitant]

REACTIONS (8)
  - ASTHENIA [None]
  - DIZZINESS [None]
  - INFLAMMATION [None]
  - NAUSEA [None]
  - ORAL INTAKE REDUCED [None]
  - PAIN IN EXTREMITY [None]
  - TACHYCARDIA [None]
  - WEIGHT DECREASED [None]
